FAERS Safety Report 5680441-5 (Version None)
Quarter: 2008Q1

REPORT INFORMATION
  Report Type: 
  Country: None (occurrence: None)
  Receive Date: 20080326
  Receipt Date: 20080319
  Transmission Date: 20080703
  Serious: Yes (Hospitalization)
  Sender: FDA-Public Use
  Company Number: A0716435A

PATIENT
  Age: 69 Year
  Sex: Male

DRUGS (2)
  1. COREG CR [Suspect]
     Indication: HYPERTENSION
     Dosage: 40MG PER DAY
     Route: 048
  2. LASIX [Concomitant]

REACTIONS (2)
  - ASTHENIA [None]
  - TREATMENT NONCOMPLIANCE [None]
